FAERS Safety Report 15854490 (Version 1)
Quarter: 2019Q1

REPORT INFORMATION
  Report Type: Spontaneous
  Country: US (occurrence: US)
  Receive Date: 20190122
  Receipt Date: 20190122
  Transmission Date: 20190417
  Serious: Yes (Hospitalization)
  Sender: FDA-Public Use
  Company Number: None

PATIENT
  Age: 36 Year
  Sex: Female
  Weight: 56.25 kg

DRUGS (1)
  1. DIFLUCAN [Suspect]
     Active Substance: FLUCONAZOLE
     Indication: VULVOVAGINAL MYCOTIC INFECTION
     Dosage: ?          QUANTITY:1 TABLET(S);?
     Route: 048
     Dates: start: 20190118, end: 20190118

REACTIONS (7)
  - Nausea [None]
  - Ocular hyperaemia [None]
  - Pyrexia [None]
  - Headache [None]
  - Lip ulceration [None]
  - Pruritus [None]
  - Mouth ulceration [None]

NARRATIVE: CASE EVENT DATE: 20190118
